FAERS Safety Report 9365810 (Version 1)
Quarter: 2013Q2

REPORT INFORMATION
  Report Type: Spontaneous
  Country: US (occurrence: None)
  Receive Date: 20130624
  Receipt Date: 20130624
  Transmission Date: 20140414
  Serious: Yes (Hospitalization)
  Sender: FDA-Public Use
  Company Number: None

PATIENT
  Age: 60 Year
  Sex: Male
  Weight: 89 kg

DRUGS (1)
  1. INTERFERON 2B [Suspect]
     Dosage: TOTAL DOSE 840 IU

REACTIONS (2)
  - Anxiety [None]
  - Non-cardiac chest pain [None]
